FAERS Safety Report 6023286-9 (Version None)
Quarter: 2008Q4

REPORT INFORMATION
  Report Type: 
  Country: None (occurrence: None)
  Receive Date: 20081224
  Receipt Date: 20081224
  Transmission Date: 20090506
  Serious: No
  Sender: FDA-Public Use
  Company Number: None

PATIENT
  Age: 38 Year
  Sex: Female
  Weight: 68.0396 kg

DRUGS (6)
  1. LASIX [Suspect]
     Indication: FLUID RETENTION
     Dosage: 20MG AND 40 MG TWICE A DAY PO
     Route: 048
     Dates: start: 20040325, end: 20051026
  2. LASIX [Suspect]
  3. ASPIRIN [Concomitant]
  4. ACE INHIBITOR - LOTENSIN [Concomitant]
  5. ENALAPRIL MALEATE [Concomitant]
  6. BETA BLOCKER - TOPROL XL [Concomitant]

REACTIONS (10)
  - BLINDNESS UNILATERAL [None]
  - BLOOD GLUCOSE INCREASED [None]
  - EYE IRRITATION [None]
  - EYE PAIN [None]
  - GLAUCOMA [None]
  - LACRIMATION INCREASED [None]
  - NIGHT BLINDNESS [None]
  - OCULAR HYPERAEMIA [None]
  - PHOTOPHOBIA [None]
  - UVEITIS [None]
